FAERS Safety Report 5103047-5 (Version None)
Quarter: 2006Q3

REPORT INFORMATION
  Report Type: 
  Country: None (occurrence: None)
  Receive Date: 20060907
  Receipt Date: 20060825
  Transmission Date: 20061208
  Serious: Yes (Death)
  Sender: FDA-Public Use
  Company Number: 14686

PATIENT
  Age: 38 Year
  Sex: Male

DRUGS (3)
  1. HYDROMORPHONE HCL [Suspect]
  2. DIAZEPAM [Suspect]
  3. SECOBARBITAL [Suspect]

REACTIONS (5)
  - ACCIDENTAL DEATH [None]
  - DRUG TOXICITY [None]
  - PULMONARY CONGESTION [None]
  - PULMONARY NECROSIS [None]
  - PULMONARY OEDEMA [None]
